FAERS Safety Report 5355884-X (Version None)
Quarter: 2007Q2

REPORT INFORMATION
  Report Type: 
  Country: None (occurrence: None)
  Receive Date: 20070613
  Receipt Date: 20070601
  Transmission Date: 20071010
  Serious: Yes (Hospitalization)
  Sender: FDA-Public Use
  Company Number: GR-ROCHE-500543

PATIENT
  Age: 27 Year
  Sex: Male

DRUGS (2)
  1. CEFTRIAXONE SODIUM [Suspect]
     Route: 065
  2. ACYCLOVIR [Suspect]
     Route: 042

REACTIONS (1)
  - RENAL FAILURE ACUTE [None]
